FAERS Safety Report 8883382 (Version 3)
Quarter: 2013Q1

REPORT INFORMATION
  Report Type: Spontaneous
  Country: US (occurrence: US)
  Receive Date: 20121102
  Receipt Date: 20130122
  Transmission Date: 20140127
  Serious: Yes (Hospitalization)
  Sender: FDA-Public Use
  Company Number: US-PFIZER INC-2012273293

PATIENT
  Age: 49 Year
  Sex: Male
  Weight: 68.03 kg

DRUGS (5)
  1. LYRICA [Suspect]
     Indication: FIBROMYALGIA
     Dosage: 50 MG, 2X/DAY
     Route: 048
  2. LYRICA [Suspect]
     Dosage: 100 MG, 2X/DAY
     Route: 048
  3. LYRICA [Suspect]
     Dosage: 150 MG, 2X/DAY
     Route: 048
  4. TRAZODONE [Concomitant]
     Dosage: UNK
  5. PREVACID [Concomitant]
     Dosage: UNK

REACTIONS (1)
  - Intestinal perforation [Recovered/Resolved]
